FAERS Safety Report 7525906-6 (Version None)
Quarter: 2011Q2

REPORT INFORMATION
  Report Type: 
  Country: None (occurrence: None)
  Receive Date: 20110606
  Receipt Date: 20110527
  Transmission Date: 20111010
  Serious: Yes (Hospitalization)
  Sender: FDA-Public Use
  Company Number: B0720605A

PATIENT
  Sex: Male

DRUGS (3)
  1. ZANTAC [Suspect]
     Indication: GASTRITIS PROPHYLAXIS
     Dosage: 300MG PER DAY
     Route: 048
     Dates: start: 20110418, end: 20110506
  2. LEVOFLOXACIN [Suspect]
     Indication: CYSTITIS
     Route: 048
     Dates: start: 20110425
  3. SULFAMETHOXAZOLE [Suspect]
     Indication: PNEUMOCYSTIS JIROVECI PNEUMONIA
     Route: 048
     Dates: start: 20110302, end: 20110318

REACTIONS (3)
  - DRUG ERUPTION [None]
  - SEPSIS [None]
  - PYREXIA [None]
